FAERS Safety Report 13670684 (Version 2)
Quarter: 2017Q3

REPORT INFORMATION
  Report Type: Spontaneous
  Country: US (occurrence: US)
  Receive Date: 20170620
  Receipt Date: 20170808
  Transmission Date: 20171127
  Serious: No
  Sender: FDA-Public Use
  Company Number: US-009507513-1706USA004437

PATIENT
  Sex: Male

DRUGS (3)
  1. PROVENTIL [Suspect]
     Active Substance: ALBUTEROL
     Dosage: 6 SPRAYS DAILY WITH 2 SPRAYS EACH MORNING, 2 SPRAYS AT NOON AND 2 SPRAYS AT NIGHT
     Route: 055
     Dates: start: 2002
  2. PROVENTIL [Suspect]
     Active Substance: ALBUTEROL
     Indication: ASTHMA
     Dosage: 6 SPRAYS DAILY WITH 2 SPRAYS EACH MORNING, 2 SPRAYS AT NOON AND 2 SPRAYS AT NIGHT
     Route: 055
  3. PROVENTIL [Suspect]
     Active Substance: ALBUTEROL
     Indication: CHRONIC OBSTRUCTIVE PULMONARY DISEASE
     Dosage: 6 SPRAYS DAILY WITH 2 SPRAYS EACH MORNING, 2 SPRAYS AT NOON AND 2 SPRAYS AT NIGHT
     Route: 055

REACTIONS (4)
  - No adverse event [Unknown]
  - Product use in unapproved indication [Unknown]
  - Product quality issue [Unknown]
  - Drug ineffective [Unknown]

NARRATIVE: CASE EVENT DATE: 2002
